FAERS Safety Report 10204664 (Version 1)
Quarter: 2014Q2

REPORT INFORMATION
  Report Type: Spontaneous
  Country: US (occurrence: None)
  Receive Date: 20140527
  Receipt Date: 20140527
  Transmission Date: 20141212
  Serious: Yes (Other)
  Sender: FDA-Public Use
  Company Number: SYM-2014-21107

PATIENT
  Age: 57 Year
  Sex: Female

DRUGS (1)
  1. XENAZINE (TETRABENAZINE) (12.5 MILLIGRAM, TABLET) (TETRABENAZINE) [Suspect]
     Indication: PRODUCT USED FOR UNKNOWN INDICATION
     Dosage: TAKE 2 TABLETS BY MOUTH EVERY MORNING THEN TABLET AT NOON, AND 1 TABLET EVERY EVENING,
     Route: 048
     Dates: start: 201306

REACTIONS (5)
  - Hyperthyroidism [None]
  - Somnolence [None]
  - Dizziness [None]
  - Weight decreased [None]
  - Dysphagia [None]
